FAERS Safety Report 15556265 (Version 1)
Quarter: 2018Q4

REPORT INFORMATION
  Report Type: Spontaneous
  Country: DE (occurrence: DE)
  Receive Date: 20181026
  Receipt Date: 20181026
  Transmission Date: 20190205
  Serious: Yes (Other)
  Sender: FDA-Public Use
  Company Number: DE-PROVELL PHARMACEUTICALS-2058117

PATIENT
  Sex: Female

DRUGS (1)
  1. EUTHYROX [Suspect]
     Active Substance: LEVOTHYROXINE SODIUM
     Indication: POST PROCEDURAL HYPOTHYROIDISM
     Dates: start: 201801

REACTIONS (5)
  - Anti-transglutaminase antibody increased [None]
  - Eosinophil count increased [None]
  - Blood immunoglobulin E abnormal [None]
  - Antiendomysial antibody positive [None]
  - Antigliadin antibody positive [None]

NARRATIVE: CASE EVENT DATE: 2018
